FAERS Safety Report 6266848-6 (Version None)
Quarter: 2009Q3

REPORT INFORMATION
  Report Type: 
  Country: None (occurrence: None)
  Receive Date: 20090714
  Receipt Date: 20090709
  Transmission Date: 20100115
  Serious: Yes (Life-Threatening, Hospitalization)
  Sender: FDA-Public Use
  Company Number: US-JNJFOC-20090702919

PATIENT
  Age: 23 Year
  Sex: Female

DRUGS (6)
  1. ULTRAM [Suspect]
     Indication: DRUG USE FOR UNKNOWN INDICATION
     Route: 048
  2. ANTIDEPRESSANT NOS [Suspect]
     Route: 048
  3. ANTIDEPRESSANT NOS [Suspect]
     Route: 048
  4. ANTIDEPRESSANT NOS [Suspect]
     Indication: DRUG USE FOR UNKNOWN INDICATION
     Route: 048
  5. BENTYL [Suspect]
     Indication: DRUG USE FOR UNKNOWN INDICATION
     Route: 048
  6. PHENCYCLIDINE [Suspect]
     Indication: DRUG USE FOR UNKNOWN INDICATION
     Route: 048

REACTIONS (11)
  - CONFUSIONAL STATE [None]
  - CONVULSION [None]
  - DYSARTHRIA [None]
  - ELECTROCARDIOGRAM QT PROLONGED [None]
  - HALLUCINATION [None]
  - HEART RATE INCREASED [None]
  - MULTIPLE DRUG OVERDOSE [None]
  - PNEUMONIA ASPIRATION [None]
  - PUPILLARY REFLEX IMPAIRED [None]
  - RESPIRATORY ARREST [None]
  - SOMNOLENCE [None]
